FAERS Safety Report 6012610-9 (Version None)
Quarter: 2008Q4

REPORT INFORMATION
  Report Type: 
  Country: None (occurrence: None)
  Receive Date: 20081217
  Receipt Date: 20081211
  Transmission Date: 20090506
  Serious: Yes (Death)
  Sender: FDA-Public Use
  Company Number: 2007JP000773

PATIENT
  Age: 32 Year
  Sex: Male
  Weight: 67 kg

DRUGS (21)
  1. PROGRAF [Suspect]
     Indication: LUNG TRANSPLANT
     Dosage: SEE IMAGE
     Route: 048
     Dates: start: 20050726, end: 20061028
  2. PROGRAF [Suspect]
     Indication: LUNG TRANSPLANT
     Dosage: SEE IMAGE
     Route: 048
     Dates: start: 20070409
  3. PROGRAF [Suspect]
     Indication: LUNG TRANSPLANT
     Dosage: SEE IMAGE
     Route: 048
     Dates: start: 20061104
  4. PROGRAF [Suspect]
     Indication: LUNG TRANSPLANT
     Dosage: SEE IMAGE
     Route: 048
     Dates: start: 20061127
  5. PROGRAF [Suspect]
     Indication: LUNG TRANSPLANT
     Dosage: SEE IMAGE
     Route: 048
     Dates: start: 20070104
  6. PROGRAF [Suspect]
     Indication: LUNG TRANSPLANT
     Dosage: 1.93 MG, IV NOS
     Route: 042
     Dates: start: 20061029, end: 20061104
  7. PROCATEROL HCL [Suspect]
     Dosage: RESPIRATORY
     Route: 055
     Dates: start: 20061227, end: 20070219
  8. SEREVENT [Suspect]
     Dosage: RESPIRATORY
     Route: 055
     Dates: start: 20061227, end: 20070219
  9. CELLCEPT [Suspect]
     Indication: LUNG TRANSPLANT
     Dosage: 2000 MG, ORAL
     Route: 048
     Dates: start: 20061029, end: 20070630
  10. METHYLPREDNISOLONE [Concomitant]
  11. CICLOSPORIN FORMULATION UNKNOWN [Concomitant]
  12. METHOTREXATE FORMULATION UNKNOWN [Concomitant]
  13. PREDNISOLONE [Concomitant]
  14. OMEPRAL INJECTION [Concomitant]
  15. LANSOPRAZOLE [Concomitant]
  16. CEFTAZIDIME [Concomitant]
  17. DALACIN INJECTION [Concomitant]
  18. DENOSINE (GANCICLOVIR) INJECTION [Concomitant]
  19. ELASPOL (SIVELESTAT) INJECTION [Concomitant]
  20. DIFLUCAN [Concomitant]
  21. BAKTAR (SULFAMETHOXAZOLE, TRIMETHOPRIM) PER ORAL NOS [Concomitant]

REACTIONS (10)
  - ARRHYTHMIA [None]
  - NO THERAPEUTIC RESPONSE [None]
  - OESOPHAGEAL CANDIDIASIS [None]
  - PSEUDOMONAS INFECTION [None]
  - RECURRENT CANCER [None]
  - STAPHYLOCOCCAL INFECTION [None]
  - T-CELL LYMPHOMA [None]
  - TACHYCARDIA [None]
  - TRANSPLANT REJECTION [None]
  - TREMOR [None]
